FAERS Safety Report 9769184 (Version 1)
Quarter: 2013Q3

REPORT INFORMATION
  Report Type: Spontaneous
  Country: GB (occurrence: None)
  Receive Date: 20130904
  Receipt Date: 20130904
  Transmission Date: 20140515
  Serious: Yes (Other)
  Sender: FDA-Public Use
  Company Number: AUR-APL-2013-06486

PATIENT
  Age: 47 Year
  Sex: Male
  Weight: 93 kg

DRUGS (6)
  1. MIRTAZAPINE [Suspect]
     Indication: PRODUCT USED FOR UNKNOWN INDICATION
     Dates: start: 20120627
  2. AMLODIPINE [Concomitant]
  3. DIAZEPAM [Concomitant]
  4. DICLOFENAC SODIUM [Concomitant]
  5. SERTRALINE [Concomitant]
  6. THIAMINE [Concomitant]

REACTIONS (5)
  - Arthralgia [None]
  - Joint swelling [None]
  - Local swelling [None]
  - Gait disturbance [None]
  - Sedation [None]
